FAERS Safety Report 11132131 (Version 1)
Quarter: 2015Q2

REPORT INFORMATION
  Report Type: Spontaneous
  Country: BR (occurrence: BR)
  Receive Date: 20150522
  Receipt Date: 20150522
  Transmission Date: 20150821
  Serious: Yes (Other)
  Sender: FDA-Public Use
  Company Number: BR-GLAXOSMITHKLINE-BR2015GSK060296

PATIENT
  Age: 55 Year
  Sex: Male

DRUGS (3)
  1. AEROLIN [Concomitant]
     Active Substance: ALBUTEROL
  2. CLENIL [Concomitant]
     Active Substance: BECLOMETHASONE DIPROPIONATE
  3. CLENIL [Suspect]
     Active Substance: BECLOMETHASONE DIPROPIONATE
     Indication: CHRONIC OBSTRUCTIVE PULMONARY DISEASE
     Dosage: 250 UG, BID
     Route: 055
     Dates: start: 201311

REACTIONS (4)
  - Eye haemorrhage [Recovered/Resolved]
  - Vision blurred [Recovering/Resolving]
  - Rhinitis allergic [Unknown]
  - Off label use [Not Recovered/Not Resolved]

NARRATIVE: CASE EVENT DATE: 20150409
